FAERS Safety Report 23837239 (Version 1)
Quarter: 2024Q2

REPORT INFORMATION
  Report Type: Report from Study
  Country: US (occurrence: US)
  Receive Date: 20240509
  Receipt Date: 20240509
  Transmission Date: 20240716
  Serious: Yes (Other)
  Sender: FDA-Public Use
  Company Number: US-ABBVIE-5747515

PATIENT
  Sex: Female

DRUGS (1)
  1. HUMIRA [Suspect]
     Active Substance: ADALIMUMAB
     Indication: Uveitis
     Route: 058

REACTIONS (6)
  - Ophthalmic vascular thrombosis [Recovering/Resolving]
  - Eye injury [Recovering/Resolving]
  - Blindness [Recovering/Resolving]
  - Cardiovascular disorder [Recovering/Resolving]
  - Asthenopia [Recovering/Resolving]
  - Eye haemorrhage [Recovering/Resolving]
